FAERS Safety Report 16883568 (Version 1)
Quarter: 2019Q4

REPORT INFORMATION
  Report Type: Spontaneous
  Country: US (occurrence: US)
  Receive Date: 20191004
  Receipt Date: 20191004
  Transmission Date: 20200122
  Serious: No
  Sender: FDA-Public Use
  Company Number: US-009507513-1909USA002546

PATIENT
  Sex: Female
  Weight: 105.58 kg

DRUGS (1)
  1. NEXPLANON [Suspect]
     Active Substance: ETONOGESTREL
     Indication: CONTRACEPTION
     Dosage: 68 MG, 1 IMPLANT EVERY 3 YEARS
     Route: 059
     Dates: start: 2018, end: 20190118

REACTIONS (2)
  - Implant site hypoaesthesia [Recovered/Resolved]
  - Implant site pain [Recovered/Resolved]
